FAERS Safety Report 5616719-0 (Version None)
Quarter: 2008Q1

REPORT INFORMATION
  Report Type: 
  Country: None (occurrence: None)
  Receive Date: 20080114
  Receipt Date: 20070425
  Transmission Date: 20080703
  Serious: Yes (Other)
  Sender: FDA-Public Use
  Company Number: A03200702737

PATIENT
  Age: 54 Year
  Sex: Female
  Weight: 52.1637 kg

DRUGS (4)
  1. PLAVIX [Suspect]
     Indication: CEREBROVASCULAR ACCIDENT
     Dosage: ORAL
     Route: 048
  2. ATENOLOL [Concomitant]
  3. GABAPENTIN [Concomitant]
  4. LORAZEPAM [Concomitant]

REACTIONS (4)
  - HAEMORRHAGE [None]
  - INFECTION [None]
  - PETECHIAE [None]
  - TRANSIENT ISCHAEMIC ATTACK [None]
